FAERS Safety Report 9156674 (Version 2)
Quarter: 2013Q1

REPORT INFORMATION
  Report Type: Spontaneous
  Country: US (occurrence: None)
  Receive Date: 20130211
  Receipt Date: 20130221
  Transmission Date: 20140127
  Serious: Yes (Hospitalization)
  Sender: FDA-Public Use
  Company Number: 2013SUN00056

PATIENT
  Age: 63 Year
  Sex: Male
  Weight: 180 kg

DRUGS (7)
  1. METFORMIN [Suspect]
     Indication: TYPE 2 DIABETES MELLITUS
     Route: 048
     Dates: start: 20100316, end: 20100622
  2. ALOGLIPTIN BENZOATE [Suspect]
     Indication: TYPE 2 DIABETES MELLITUS
     Route: 048
     Dates: start: 20100721, end: 20101015
  3. ZOCOR (SIMVASTATIN) [Concomitant]
  4. ADVAIR (FLUTICASONE PROPIONATE AND SALMETROL XINAFOATE) [Concomitant]
  5. LISNIOPRIL (LISINOPRIL) [Concomitant]
  6. ASPIRIN/ECOTRIN (ACETYLSALICYLIC ACID) [Concomitant]
  7. IBUPROFEN (IBUPROFEN) [Concomitant]

REACTIONS (5)
  - Non-cardiac chest pain [None]
  - Atelectasis [None]
  - Emphysema [None]
  - Hepatic steatosis [None]
  - Blood creatinine increased [None]
